FAERS Safety Report 16300479 (Version 1)
Quarter: 2019Q2

REPORT INFORMATION
  Report Type: Spontaneous
  Country: PL (occurrence: PL)
  Receive Date: 20190510
  Receipt Date: 20190510
  Transmission Date: 20190711
  Serious: Yes (Other)
  Sender: FDA-Public Use
  Company Number: PL-PFIZER INC-2019197652

PATIENT
  Age: 44 Year
  Sex: Male

DRUGS (2)
  1. UNIDOX [DOXYCYCLINE MONOHYDRATE] SOLUTAB [Interacting]
     Active Substance: DOXYCYCLINE
     Dosage: UNK UNK, 2X/DAY
     Dates: start: 20190317
  2. AZITHROMYCIN ANHYDROUS. [Suspect]
     Active Substance: AZITHROMYCIN ANHYDROUS
     Dosage: UNK

REACTIONS (3)
  - Conjunctivitis [Unknown]
  - Drug interaction [Unknown]
  - Pharyngeal swelling [Unknown]
